FAERS Safety Report 9236999 (Version 1)
Quarter: 2013Q2

REPORT INFORMATION
  Report Type: Spontaneous
  Country: US (occurrence: US)
  Receive Date: 20130417
  Receipt Date: 20130417
  Transmission Date: 20140414
  Serious: No
  Sender: FDA-Public Use
  Company Number: US-PFIZER INC-2013118664

PATIENT
  Age: 33 Year
  Sex: Female
  Weight: 65.76 kg

DRUGS (4)
  1. LYRICA [Suspect]
     Indication: FIBROMYALGIA
     Dosage: 150 MG, 2X/DAY
     Route: 048
     Dates: start: 201003
  2. TOPAMAX [Concomitant]
     Dosage: UNK
  3. OMEPRAZOLE [Concomitant]
     Dosage: UNK
  4. XYZAL [Concomitant]
     Dosage: UNK

REACTIONS (3)
  - Drug ineffective [Unknown]
  - Withdrawal syndrome [Unknown]
  - Neck pain [Unknown]
